FAERS Safety Report 19226906 (Version 1)
Quarter: 2021Q2

REPORT INFORMATION
  Report Type: Spontaneous
  Country: IT (occurrence: IT)
  Receive Date: 20210506
  Receipt Date: 20210506
  Transmission Date: 20210717
  Serious: Yes (Death, Life-Threatening, Other)
  Sender: FDA-Public Use
  Company Number: IT-AMGEN-ITASP2021066429

PATIENT

DRUGS (3)
  1. ROMIPLOSTIM [Suspect]
     Active Substance: ROMIPLOSTIM
     Indication: IMMUNE THROMBOCYTOPENIA
     Dosage: UNK
     Route: 065
  2. RITUXIMAB. [Suspect]
     Active Substance: RITUXIMAB
     Indication: PRODUCT USED FOR UNKNOWN INDICATION
     Route: 065
  3. ELTROMBOPAG [Suspect]
     Active Substance: ELTROMBOPAG
     Indication: IMMUNE THROMBOCYTOPENIA
     Route: 065

REACTIONS (41)
  - Thrombosis [Fatal]
  - Ischaemic stroke [Fatal]
  - Multiple organ dysfunction syndrome [Fatal]
  - Infection [Fatal]
  - Sepsis [Fatal]
  - Eye haemorrhage [Unknown]
  - Haemorrhage [Unknown]
  - Venous thrombosis [Unknown]
  - Drug ineffective [Unknown]
  - Cardiac disorder [Fatal]
  - Mucocutaneous haemorrhage [Unknown]
  - Rash [Unknown]
  - Renal cell carcinoma [Fatal]
  - Neoplasm [Fatal]
  - Immune thrombocytopenia [Unknown]
  - Transient ischaemic attack [Unknown]
  - Acute myocardial infarction [Fatal]
  - Haemorrhage intracranial [Unknown]
  - Dementia [Fatal]
  - Haemorrhage urinary tract [Unknown]
  - Treatment failure [Unknown]
  - Gastrointestinal disorder [Unknown]
  - Peripheral artery thrombosis [Unknown]
  - Arthralgia [Unknown]
  - Thrombophlebitis superficial [Unknown]
  - Renal failure [Fatal]
  - Bronchopulmonary aspergillosis [Fatal]
  - Hepatic cirrhosis [Fatal]
  - Gastrointestinal haemorrhage [Unknown]
  - Retinal vein thrombosis [Unknown]
  - Haemorrhoids thrombosed [Unknown]
  - Platelet count abnormal [Unknown]
  - Transaminases increased [Unknown]
  - Pulmonary embolism [Fatal]
  - Peritonitis [Fatal]
  - Pneumonia bacterial [Fatal]
  - Urinary tract infection [Fatal]
  - Respiratory tract haemorrhage [Unknown]
  - Deep vein thrombosis [Unknown]
  - Drug resistance [Unknown]
  - Arterial thrombosis [Unknown]
